FAERS Safety Report 23974076 (Version 1)
Quarter: 2024Q2

REPORT INFORMATION
  Report Type: Report from Study
  Country: US (occurrence: US)
  Receive Date: 20240613
  Receipt Date: 20240613
  Transmission Date: 20240716
  Serious: Yes (Hospitalization)
  Sender: FDA-Public Use
  Company Number: US-JNJFOC-20240620923

PATIENT
  Age: 71 Year
  Sex: Female

DRUGS (1)
  1. MACITENTAN [Suspect]
     Active Substance: MACITENTAN
     Indication: Pulmonary arterial hypertension
     Dosage: STARTED MACITENTAN ABOUT TWO MONTHS AGO
     Route: 048
     Dates: start: 202404

REACTIONS (5)
  - Vocal cord operation [Unknown]
  - Dyspnoea [Recovering/Resolving]
  - Rash [Not Recovered/Not Resolved]
  - Increased upper airway secretion [Recovering/Resolving]
  - Drug ineffective [Not Recovered/Not Resolved]
